FAERS Safety Report 13803978 (Version 3)
Quarter: 2018Q1

REPORT INFORMATION
  Report Type: Report from Study
  Country: None (occurrence: AR)
  Receive Date: 20170728
  Receipt Date: 20180212
  Transmission Date: 20180508
  Serious: Yes (Other)
  Sender: FDA-Public Use
  Company Number: AR-ABBVIE-17K-007-2053585-00

PATIENT
  Age: 63 Year
  Sex: Female

DRUGS (1)
  1. HUMIRA [Suspect]
     Active Substance: ADALIMUMAB
     Indication: RHEUMATOID ARTHRITIS
     Route: 058
     Dates: start: 20150729, end: 2015

REACTIONS (3)
  - Goitre [Recovering/Resolving]
  - Nasopharyngitis [Recovering/Resolving]
  - Thyroid mass [Recovering/Resolving]

NARRATIVE: CASE EVENT DATE: 201706
